FAERS Safety Report 4895835-5 (Version None)
Quarter: 2006Q1

REPORT INFORMATION
  Report Type: 
  Country: None (occurrence: None)
  Receive Date: 20060130
  Receipt Date: 20060120
  Transmission Date: 20060701
  Serious: Yes (Death, Hospitalization)
  Sender: FDA-Public Use
  Company Number: US-ABBOTT-06P-163-0322965-00

PATIENT
  Sex: Female
  Weight: 3.133 kg

DRUGS (2)
  1. SYNAGIS INJECTION [Suspect]
     Indication: ANTIVIRAL PROPHYLAXIS
     Route: 030
     Dates: start: 20051212, end: 20051212
  2. SYNAGIS INJECTION [Suspect]
     Route: 030
     Dates: start: 20060109, end: 20060109

REACTIONS (1)
  - BRONCHIOLITIS [None]
